FAERS Safety Report 8387856-5 (Version None)
Quarter: 2012Q2

REPORT INFORMATION
  Report Type: 
  Country: None (occurrence: None)
  Receive Date: 20120525
  Receipt Date: 20120215
  Transmission Date: 20120825
  Serious: No
  Sender: FDA-Public Use
  Company Number: US-BRISTOL-MYERS SQUIBB COMPANY-16401226

PATIENT
  Sex: Male

DRUGS (1)
  1. KOMBIGLYZE XR [Suspect]

REACTIONS (2)
  - MYALGIA [None]
  - DYSURIA [None]
